FAERS Safety Report 9097309 (Version 1)
Quarter: 2013Q1

REPORT INFORMATION
  Report Type: Spontaneous
  Country: QA (occurrence: QA)
  Receive Date: 20130212
  Receipt Date: 20130212
  Transmission Date: 20140127
  Serious: Yes (Other)
  Sender: FDA-Public Use
  Company Number: QA-PFIZER INC-2013047237

PATIENT
  Age: 51 Year
  Sex: Female
  Weight: 55 kg

DRUGS (12)
  1. CISPLATIN [Suspect]
     Indication: HODGKIN^S DISEASE
     Dosage: 25 MG/M2/DAY DAYS 1-4
     Route: 042
     Dates: start: 20120423, end: 20120427
  2. CYTARABINE [Suspect]
     Indication: HODGKIN^S DISEASE
     Dosage: 2000 MG/M2 ON DAY 5
     Route: 042
     Dates: start: 20120423, end: 20120427
  3. ETOPOSIDE [Suspect]
     Indication: HODGKIN^S DISEASE
     Dosage: 40 MG/M2/DAY ON DAYS 1-4
     Route: 042
     Dates: start: 20120423, end: 20120427
  4. METHYLPREDNISOLONE [Suspect]
     Indication: HODGKIN^S DISEASE
     Dosage: 500 MG/DAY ON DAYS 1-4
     Route: 042
     Dates: start: 20120423, end: 20120427
  5. ENTECAVIR [Concomitant]
     Dosage: 1 MG, 1X/DAY
  6. PROPRANOLOL [Concomitant]
     Dosage: 20 MG, 2X/DAY
  7. SPIRONOLACTONE [Concomitant]
     Dosage: 50 MG, 1X/DAY
  8. ALLOPURINOL [Concomitant]
     Dosage: 100 MG, 1X/DAY
  9. FUROSEMIDE [Concomitant]
     Dosage: 40 MG, 1X/DAY
  10. LACTULOSE [Concomitant]
     Dosage: 30 ML, 2X/DAY
  11. VANCOMYCIN [Concomitant]
     Dosage: 1 G EVERY 12 HOURS
  12. PIPERACILLIN SODIUM W/TAZOBACTAM SODIUM [Concomitant]
     Dosage: 4.5 G EVERY 8 HOURS

REACTIONS (4)
  - Hypophosphataemia [Recovered/Resolved]
  - Leukopenia [Recovering/Resolving]
  - Neutropenia [Recovering/Resolving]
  - Hypokalaemia [Unknown]
